FAERS Safety Report 7634122-9 (Version None)
Quarter: 2011Q3

REPORT INFORMATION
  Report Type: 
  Country: None (occurrence: None)
  Receive Date: 20110725
  Receipt Date: 20110714
  Transmission Date: 20111222
  Serious: Yes (Hospitalization, Other)
  Sender: FDA-Public Use
  Company Number: CN-ASTRAZENECA-2011SE42080

PATIENT

DRUGS (3)
  1. METOPROLOL SUCCINATE [Suspect]
     Route: 048
     Dates: start: 20090101, end: 20110101
  2. ASPIRIN [Concomitant]
  3. LIPID LOWER AGENT [Concomitant]

REACTIONS (1)
  - SINUS ARREST [None]
